FAERS Safety Report 4567834-4 (Version None)
Quarter: 2005Q1

REPORT INFORMATION
  Report Type: 
  Country: None (occurrence: None)
  Receive Date: 20050202
  Receipt Date: 20041022
  Transmission Date: 20050727
  Serious: No
  Sender: FDA-Public Use
  Company Number: US-GLAXOSMITHKLINE-A0530884A

PATIENT
  Age: 44 Year
  Sex: Female

DRUGS (2)
  1. AVANDAMET [Suspect]
     Indication: INSULIN RESISTANCE
     Dosage: 1TAB PER DAY
     Route: 048
  2. NO CONCURRENT MEDICATION [Concomitant]

REACTIONS (1)
  - WEIGHT INCREASED [None]
